FAERS Safety Report 6938957-7 (Version None)
Quarter: 2010Q3

REPORT INFORMATION
  Report Type: 
  Country: None (occurrence: None)
  Receive Date: 20100824
  Receipt Date: 20100813
  Transmission Date: 20110219
  Serious: Yes (Other)
  Sender: FDA-Public Use
  Company Number: US-JNJFOC-20100804910

PATIENT
  Age: 70 Year
  Sex: Male
  Weight: 82.56 kg

DRUGS (4)
  1. REMICADE [Suspect]
     Indication: CROHN'S DISEASE
     Route: 042
  2. REMICADE [Suspect]
     Route: 042
  3. REMICADE [Suspect]
     Dosage: INTERVAL DECREASED, INFUSION WAS ADMINISTERED MORE FREQUENTLY.
     Route: 042
  4. REMICADE [Suspect]
     Route: 042

REACTIONS (2)
  - OVERDOSE [None]
  - THYROID CANCER [None]
